FAERS Safety Report 8187786-8 (Version None)
Quarter: 2012Q1

REPORT INFORMATION
  Report Type: 
  Country: None (occurrence: None)
  Receive Date: 20120306
  Receipt Date: 20120228
  Transmission Date: 20120608
  Serious: Yes (Death)
  Sender: FDA-Public Use
  Company Number: US-PURDUE-USA-2012-0083103

PATIENT
  Sex: Male

DRUGS (1)
  1. BUTRANS [Suspect]
     Indication: PRODUCT USED FOR UNKNOWN INDICATION
     Dosage: UNK

REACTIONS (1)
  - ACCIDENTAL DRUG INTAKE BY CHILD [None]
